FAERS Safety Report 16960809 (Version 1)
Quarter: 2019Q4

REPORT INFORMATION
  Report Type: Report from Study
  Country: None (occurrence: CA)
  Receive Date: 20191025
  Receipt Date: 20191025
  Transmission Date: 20200122
  Serious: Yes (Other)
  Sender: FDA-Public Use
  Company Number: CA-ABBVIE-19K-028-2974492-00

PATIENT
  Sex: Female

DRUGS (1)
  1. HUMIRA [Suspect]
     Active Substance: ADALIMUMAB
     Indication: CROHN^S DISEASE
     Route: 058
     Dates: start: 20100129

REACTIONS (13)
  - Fibromyalgia [Not Recovered/Not Resolved]
  - Haemorrhoids [Not Recovered/Not Resolved]
  - Papule [Not Recovered/Not Resolved]
  - Diabetes mellitus [Not Recovered/Not Resolved]
  - Feeling of body temperature change [Unknown]
  - Arthropod bite [Unknown]
  - Hyperhidrosis [Unknown]
  - Skin lesion [Not Recovered/Not Resolved]
  - Pruritus [Unknown]
  - Erythema [Unknown]
  - Hypertension [Not Recovered/Not Resolved]
  - Acne [Not Recovered/Not Resolved]
  - Neoplasm skin [Unknown]

NARRATIVE: CASE EVENT DATE: 2016
